FAERS Safety Report 17838564 (Version 1)
Quarter: 2020Q2

REPORT INFORMATION
  Report Type: Report from Study
  Country: GB (occurrence: GB)
  Receive Date: 20200528
  Receipt Date: 20200528
  Transmission Date: 20200714
  Serious: Yes (Other)
  Sender: FDA-Public Use
  Company Number: NVSC2020GB140780

PATIENT
  Sex: Female

DRUGS (1)
  1. HYRIMOZ [Suspect]
     Active Substance: ADALIMUMAB-ADAZ
     Indication: UVEITIS
     Dosage: 1 DF, EOW
     Route: 065

REACTIONS (5)
  - Obsessive-compulsive disorder [Unknown]
  - Fear of death [Unknown]
  - Product dose omission [Unknown]
  - Suicidal ideation [Unknown]
  - Depressed mood [Unknown]
